FAERS Safety Report 9107647 (Version 4)
Quarter: 2014Q2

REPORT INFORMATION
  Report Type: Spontaneous
  Country: US (occurrence: US)
  Receive Date: 20130221
  Receipt Date: 20140417
  Transmission Date: 20141212
  Serious: Yes (Hospitalization, Disabling, Other)
  Sender: FDA-Public Use
  Company Number: US-009507513-1302USA009122

PATIENT
  Sex: Female

DRUGS (3)
  1. FOSAMAX [Suspect]
     Indication: OSTEOPOROSIS
     Dosage: 10 MG, QD
     Route: 048
     Dates: start: 199509, end: 200110
  2. FOSAMAX [Suspect]
     Dosage: 70 MG, QW
     Route: 048
     Dates: start: 200110, end: 200611
  3. VITAMINS (UNSPECIFIED) [Concomitant]
     Dosage: UNK
     Dates: start: 1985, end: 2010

REACTIONS (11)
  - Femur fracture [Recovered/Resolved with Sequelae]
  - Pneumonia [Unknown]
  - Respiratory disorder [Unknown]
  - Infection [Unknown]
  - Gastrointestinal tube insertion [Unknown]
  - Depression [Unknown]
  - Anxiety [Unknown]
  - Hypertension [Unknown]
  - Osteosclerosis [Unknown]
  - Vertebral osteophyte [Unknown]
  - Gastrooesophageal reflux disease [Unknown]
